FAERS Safety Report 4703586-2 (Version None)
Quarter: 2005Q2

REPORT INFORMATION
  Report Type: 
  Country: None (occurrence: None)
  Receive Date: 20050630
  Receipt Date: 20050519
  Transmission Date: 20051028
  Serious: Yes (Life-Threatening, Other)
  Sender: FDA-Public Use
  Company Number: PHBS2005JP07182

PATIENT
  Age: 46 Year
  Sex: Female
  Weight: 50 kg

DRUGS (4)
  1. AREDIA [Suspect]
     Indication: BREAST CANCER METASTATIC
     Dosage: 90 MG/D
     Route: 042
     Dates: start: 20050106, end: 20050407
  2. LANIRAPID [Suspect]
     Dosage: 0.1 MG/D
     Route: 048
     Dates: start: 20041111, end: 20050417
  3. NEUQUINON [Suspect]
     Dosage: 30 MG/D
     Route: 048
     Dates: start: 20040407, end: 20050417
  4. NEUQUINON [Suspect]
     Dosage: 30 MG/D
     Route: 048
     Dates: start: 20040407, end: 20050417

REACTIONS (5)
  - CARDIO-RESPIRATORY ARREST [None]
  - CATHETERISATION CARDIAC [None]
  - LOSS OF CONSCIOUSNESS [None]
  - RESUSCITATION [None]
  - VENTRICULAR FIBRILLATION [None]
